FAERS Safety Report 13001930 (Version 2)
Quarter: 2017Q1

REPORT INFORMATION
  Report Type: Spontaneous
  Country: US (occurrence: US)
  Receive Date: 20161206
  Receipt Date: 20170206
  Transmission Date: 20170428
  Serious: No
  Sender: FDA-Public Use
  Company Number: US-PFIZER INC-2016559535

PATIENT
  Age: 58 Year
  Sex: Female
  Weight: 108.84 kg

DRUGS (1)
  1. GABAPENTIN. [Suspect]
     Active Substance: GABAPENTIN
     Indication: NEURALGIA
     Dosage: 800 MG, 3X/DAY
     Route: 048
     Dates: start: 201607, end: 20161215

REACTIONS (1)
  - Drug ineffective for unapproved indication [Unknown]
